FAERS Safety Report 4439987-X (Version None)
Quarter: 2004Q3

REPORT INFORMATION
  Report Type: 
  Country: None (occurrence: None)
  Receive Date: 20040831
  Receipt Date: 20040817
  Transmission Date: 20050211
  Serious: Yes (Other)
  Sender: FDA-Public Use
  Company Number: 238705

PATIENT
  Sex: Male
  Weight: 3.7 kg

DRUGS (6)
  1. ACTRAPID PENFILL HM (GE) 3ML (INSULIN HUMAN) SOLUTION FOR INJECTION, 1 [Suspect]
     Indication: DIABETES MELLITUS INSULIN-DEPENDENT
     Dosage: 94 IU, QD, INTRAUTERINE
     Route: 015
     Dates: start: 20030728
  2. FOLIC ACID [Concomitant]
  3. ANTAGEL (MAGNESIUM OXIDE, ALGELDRATE) [Concomitant]
  4. LAKTULOSE ^DAK^ (LACTULOSE) [Concomitant]
  5. LIDOCAINE [Concomitant]
  6. MORPHINE [Concomitant]

REACTIONS (3)
  - DRUG EXPOSURE DURING PREGNANCY [None]
  - HYPOGLYCAEMIA NEONATAL [None]
  - PREMATURE BABY [None]
